FAERS Safety Report 12188537 (Version 3)
Quarter: 2016Q2

REPORT INFORMATION
  Report Type: Spontaneous
  Country: RS (occurrence: RS)
  Receive Date: 20160317
  Receipt Date: 20160517
  Transmission Date: 20160815
  Serious: Yes (Death, Hospitalization)
  Sender: FDA-Public Use
  Company Number: RS-JNJFOC-20160313926

PATIENT
  Sex: Male

DRUGS (1)
  1. STELARA [Suspect]
     Active Substance: USTEKINUMAB
     Indication: PSORIATIC ARTHROPATHY
     Route: 058

REACTIONS (5)
  - Cardiac failure [Unknown]
  - Adverse event [Fatal]
  - Loss of consciousness [Recovering/Resolving]
  - Staphylococcal sepsis [Recovering/Resolving]
  - Cerebral infarction [Recovering/Resolving]
